FAERS Safety Report 5666888-1 (Version None)
Quarter: 2008Q1

REPORT INFORMATION
  Report Type: 
  Country: None (occurrence: None)
  Receive Date: 20080315
  Receipt Date: 20080102
  Transmission Date: 20080703
  Serious: Yes (Other)
  Sender: FDA-Public Use
  Company Number: US-ABBOTT-08P-163-0432572-00

PATIENT
  Sex: Male

DRUGS (4)
  1. HUMIRA [Suspect]
     Indication: PSORIATIC ARTHROPATHY
     Route: 058
     Dates: start: 20070101, end: 20070107
  2. FENTANYL TRANSDERMAL SYSTEM [Suspect]
     Indication: PAIN
     Dosage: PATCH
     Route: 061
     Dates: start: 20050101, end: 20071224
  3. FENTANYL TRANSDERMAL SYSTEM [Suspect]
     Dosage: PATCH
     Route: 061
     Dates: start: 20071225
  4. DIURETICS [Concomitant]
     Indication: PITUITARY-DEPENDENT CUSHING'S SYNDROME
     Route: 048

REACTIONS (9)
  - ASTHENIA [None]
  - COUGH [None]
  - DEHYDRATION [None]
  - FATIGUE [None]
  - GASTROENTERITIS VIRAL [None]
  - NASAL CONGESTION [None]
  - NASOPHARYNGITIS [None]
  - OVERDOSE [None]
  - OXYGEN SATURATION DECREASED [None]
